FAERS Safety Report 8901679 (Version 1)
Quarter: 2012Q4

REPORT INFORMATION
  Report Type: Spontaneous
  Country: US (occurrence: None)
  Receive Date: 20121108
  Receipt Date: 20121108
  Transmission Date: 20130627
  Serious: No
  Sender: FDA-Public Use
  Company Number: None

PATIENT
  Age: 56 Year
  Sex: Female
  Weight: 60.78 kg

DRUGS (1)
  1. CREST PRO-HEALTH RINSE [Suspect]
     Indication: ORAL HYGIENE
     Dosage: 2 tbsp  Daily  po
     Route: 048
     Dates: start: 20120901, end: 20121106

REACTIONS (2)
  - Tooth discolouration [None]
  - Product quality issue [None]
